FAERS Safety Report 5253083-3 (Version None)
Quarter: 2007Q1

REPORT INFORMATION
  Report Type: 
  Country: None (occurrence: None)
  Receive Date: 20070301
  Receipt Date: 20070215
  Transmission Date: 20070707
  Serious: Yes (Other)
  Sender: FDA-Public Use
  Company Number: US-SOLVAY-00207000524

PATIENT
  Age: 25907 Day
  Sex: Male
  Weight: 77.5 kg

DRUGS (7)
  1. COREG [Concomitant]
     Indication: HYPERTENSION
     Dosage: DAILY DOSE: 3.125 MILLIGRAM(S)
     Route: 048
     Dates: start: 20040408
  2. ANDROGEL [Suspect]
     Indication: HYPOGONADISM
     Dosage: DAILY DOSE: 5 GRAM(S)
     Route: 062
     Dates: start: 20060530, end: 20061128
  3. DIOVAN HCT [Concomitant]
     Indication: HYPERTENSION
     Dosage: DAILY DOSE: 1 DOSAGE FORM
     Route: 048
     Dates: start: 20060201
  4. DILACOR XR [Concomitant]
     Indication: HYPERTENSION
     Dosage: DAILY DOSE: 240 MILLIGRAM(S)
     Route: 048
     Dates: start: 19991109
  5. GLUCOTROL XL [Concomitant]
     Indication: DIABETES MELLITUS
     Dosage: DAILY DOSE: 5 MILLIGRAM(S)
     Route: 048
     Dates: start: 19950702
  6. ALLOPURINOL SODIUM [Concomitant]
     Indication: GOUT
     Dosage: DAILY DOSE: 300 MILLIGRAM(S)
     Route: 048
     Dates: start: 19920213
  7. FEXOFENADINE [Concomitant]
     Indication: SEASONAL ALLERGY
     Dosage: DAILY DOSE: 30 MILLIGRAM(S)
     Route: 048
     Dates: start: 20060530

REACTIONS (1)
  - RETINAL DETACHMENT [None]
